FAERS Safety Report 5385067-9 (Version None)
Quarter: 2007Q3

REPORT INFORMATION
  Report Type: 
  Country: None (occurrence: None)
  Receive Date: 20070706
  Receipt Date: 20070706
  Transmission Date: 20080115
  Serious: Yes (Other)
  Sender: FDA-Public Use
  Company Number: None

PATIENT
  Age: 13 Year
  Sex: Male

DRUGS (2)
  1. MIRTAZAPINE [Suspect]
     Indication: ADJUSTMENT DISORDER
     Dosage: 15MG 1 QHS PO
     Route: 048
     Dates: start: 20070607
  2. MIRTAZAPINE [Suspect]
     Indication: DEPRESSION
     Dosage: 15MG 1 QHS PO
     Route: 048
     Dates: start: 20070607

REACTIONS (3)
  - OEDEMA GENITAL [None]
  - PERIORBITAL OEDEMA [None]
  - SWELLING FACE [None]
